FAERS Safety Report 4721816-8 (Version None)
Quarter: 2005Q3

REPORT INFORMATION
  Report Type: 
  Country: None (occurrence: None)
  Receive Date: 20050721
  Receipt Date: 20050427
  Transmission Date: 20060218
  Serious: No
  Sender: FDA-Public Use
  Company Number: US-BRISTOL-MYERS SQUIBB COMPANY-12948071

PATIENT
  Age: 71 Year
  Sex: Male
  Weight: 109 kg

DRUGS (7)
  1. COUMADIN [Suspect]
     Indication: ATRIAL FIBRILLATION
     Dosage: 5MG TABLET; TITRATED TO CURRENT DOSE 10MG, 4 X PER WEEK + 7.5MG, 3 X PER WEEK
     Route: 048
     Dates: start: 20050101
  2. MAXZIDE [Concomitant]
     Dosage: 25/37.5 DAILY
  3. COZAAR [Concomitant]
  4. K-DUR 10 [Concomitant]
  5. VALIUM [Concomitant]
  6. ASPIRIN [Concomitant]
  7. CELEXA [Concomitant]

REACTIONS (8)
  - ASTHENIA [None]
  - DRY MOUTH [None]
  - EPISTAXIS [None]
  - MUSCLE SPASMS [None]
  - NAUSEA [None]
  - RECTAL HAEMORRHAGE [None]
  - STOMACH DISCOMFORT [None]
  - TREMOR [None]
